FAERS Safety Report 10264886 (Version 1)
Quarter: 2014Q2

REPORT INFORMATION
  Report Type: Spontaneous
  Country: CA (occurrence: CA)
  Receive Date: 20140627
  Receipt Date: 20140627
  Transmission Date: 20141212
  Serious: Yes (Other)
  Sender: FDA-Public Use
  Company Number: CA-MALLINCKRODT-T201402591

PATIENT
  Age: 46 Year
  Sex: Female
  Weight: 54.42 kg

DRUGS (1)
  1. METHADOSE [Suspect]
     Indication: PRODUCT USED FOR UNKNOWN INDICATION
     Dosage: 110 MG, UNK
     Route: 065

REACTIONS (3)
  - Abdominal pain [Unknown]
  - Tooth infection [Unknown]
  - Toothache [Unknown]
